FAERS Safety Report 23691714 (Version 1)
Quarter: 2024Q1

REPORT INFORMATION
  Report Type: Spontaneous
  Country: US (occurrence: None)
  Receive Date: 20240329
  Receipt Date: 20240329
  Transmission Date: 20240410
  Serious: No
  Sender: FDA-Public Use
  Company Number: None

PATIENT
  Age: 61 Year
  Sex: Female

DRUGS (3)
  1. AUGTYRO [Suspect]
     Active Substance: REPOTRECTINIB
     Indication: Lung neoplasm malignant
     Dosage: 40MG ONCE DAILY ORAL?
     Route: 048
     Dates: start: 202402
  2. CEFDINIR [Concomitant]
  3. LORBRENA [Concomitant]
     Active Substance: LORLATINIB

REACTIONS (3)
  - Pneumonia [None]
  - Neuropathy peripheral [None]
  - Feeling abnormal [None]

NARRATIVE: CASE EVENT DATE: 20240303
